FAERS Safety Report 13603469 (Version 1)
Quarter: 2017Q2

REPORT INFORMATION
  Report Type: Spontaneous
  Country: US (occurrence: US)
  Receive Date: 20170601
  Receipt Date: 20170601
  Transmission Date: 20170912
  Serious: No
  Sender: FDA-Public Use
  Company Number: US-OTSUKA-2017_001783

PATIENT
  Age: 83 Year
  Sex: Male

DRUGS (2)
  1. SAMSCA [Suspect]
     Indication: BLOOD SODIUM DECREASED
     Dosage: 15 MG, DAILY
     Route: 065
     Dates: start: 201701, end: 201701
  2. SAMSCA [Suspect]
     Indication: INAPPROPRIATE ANTIDIURETIC HORMONE SECRETION
     Dosage: 30 MG, UNK
     Route: 065
     Dates: start: 201701

REACTIONS (4)
  - Drug ineffective [Unknown]
  - Blood sodium decreased [Unknown]
  - Polyuria [Not Recovered/Not Resolved]
  - Dizziness [Not Recovered/Not Resolved]

NARRATIVE: CASE EVENT DATE: 201701
